FAERS Safety Report 6195234-2 (Version None)
Quarter: 2009Q2

REPORT INFORMATION
  Report Type: 
  Country: None (occurrence: None)
  Receive Date: 20090519
  Receipt Date: 20090504
  Transmission Date: 20091009
  Serious: Yes (Other)
  Sender: FDA-Public Use
  Company Number: FR-GENENTECH-283097

PATIENT

DRUGS (5)
  1. RITUXIMAB [Suspect]
     Indication: MANTLE CELL LYMPHOMA
     Dosage: 375 MG/M2, UNK
     Route: 065
  2. VELCADE [Suspect]
     Indication: MANTLE CELL LYMPHOMA
     Dosage: 1.3 MG/M2, UNK
     Route: 065
  3. ADRIBLASTINE [Suspect]
     Indication: MANTLE CELL LYMPHOMA
     Dosage: 9 MG/M2, UNK
     Route: 065
  4. DEXAMETHASONE 4MG TAB [Suspect]
     Indication: MANTLE CELL LYMPHOMA
     Dosage: 40 MG, UNK
     Route: 065
  5. CHLORAMBUCIL [Suspect]
     Indication: MANTLE CELL LYMPHOMA
     Dosage: 12 MG, UNK
     Route: 065

REACTIONS (4)
  - CARDIOTOXICITY [None]
  - HEPATOTOXICITY [None]
  - NEUROTOXICITY [None]
  - PULMONARY TOXICITY [None]
